FAERS Safety Report 6558344-3 (Version None)
Quarter: 2010Q1

REPORT INFORMATION
  Report Type: 
  Country: None (occurrence: None)
  Receive Date: 20100129
  Receipt Date: 20100121
  Transmission Date: 20100710
  Serious: Yes (Other)
  Sender: FDA-Public Use
  Company Number: US-MYLANLABS-2010S1001231

PATIENT
  Age: 47 Year
  Sex: Female
  Weight: 56.7 kg

DRUGS (7)
  1. FENTANYL CITRATE [Suspect]
     Indication: NECK PAIN
     Dosage: CHANGED PATCHES Q2D
     Route: 062
     Dates: start: 20091222, end: 20100101
  2. DIAZEPAM [Concomitant]
  3. DEPAKOTE [Concomitant]
  4. NEURONTIN [Concomitant]
  5. PROPRANOLOL [Concomitant]
  6. LEXAPRO [Concomitant]
  7. LAMICTAL [Concomitant]

REACTIONS (2)
  - DRUG WITHDRAWAL SYNDROME [None]
  - NECK PAIN [None]
